FAERS Safety Report 9409547 (Version 2)
Quarter: 2013Q3

REPORT INFORMATION
  Report Type: Spontaneous
  Country: AU (occurrence: AU)
  Receive Date: 20130719
  Receipt Date: 20130827
  Transmission Date: 20140515
  Serious: Yes (Disabling)
  Sender: FDA-Public Use
  Company Number: AU-PFIZER INC-2013210484

PATIENT
  Age: 61 Year
  Sex: Female

DRUGS (2)
  1. OLMETEC PLUS [Suspect]
     Indication: HYPERTENSION
     Dosage: [OLMESARTAN MEDOXOMIL 40 MG]/ [HYDROCHLOROTHIAZIDE 25 MG], UNK
     Route: 048
     Dates: start: 2010, end: 20130702
  2. SULFASALAZINE [Suspect]
     Dosage: UNK
     Route: 065

REACTIONS (6)
  - Colitis microscopic [Recovered/Resolved]
  - Polyp [Unknown]
  - Chills [Unknown]
  - Dizziness [Unknown]
  - Nausea [Unknown]
  - Rash erythematous [Unknown]
